FAERS Safety Report 7963911-6 (Version None)
Quarter: 2011Q4

REPORT INFORMATION
  Report Type: 
  Country: None (occurrence: None)
  Receive Date: 20111208
  Receipt Date: 20111125
  Transmission Date: 20120403
  Serious: Yes (Hospitalization)
  Sender: FDA-Public Use
  Company Number: DE-RANBAXY-2011US-50831

PATIENT

DRUGS (7)
  1. IPRATROPIUM BROMIDE [Concomitant]
     Indication: CHRONIC OBSTRUCTIVE PULMONARY DISEASE
     Dosage: UNK,UNK
     Route: 065
  2. SYMBICORT [Concomitant]
     Indication: CHRONIC OBSTRUCTIVE PULMONARY DISEASE
     Dosage: UNK,UNK
     Route: 065
  3. PANTOPRAZOLE [Suspect]
     Indication: PRODUCT USED FOR UNKNOWN INDICATION
     Dosage: 20 MG, QD
     Route: 048
     Dates: start: 20110405, end: 20110420
  4. SIMVASTATIN [Suspect]
     Indication: PRODUCT USED FOR UNKNOWN INDICATION
     Dosage: 20 MG, UNK
     Route: 048
     Dates: start: 20110415, end: 20110420
  5. PIPERACILLIN AND TAZOBACTAM [Suspect]
     Indication: SEPSIS
     Dosage: 4G / 500MG TWICE DAILY
     Route: 042
     Dates: start: 20110404, end: 20110418
  6. ALBUTEROL SULFATE AUTOHALER [Concomitant]
     Indication: CHRONIC OBSTRUCTIVE PULMONARY DISEASE
     Dosage: UNK,UNK
     Route: 065
  7. AMLODIPINE [Suspect]
     Indication: PRODUCT USED FOR UNKNOWN INDICATION
     Dosage: 5 MG, UNK
     Route: 048
     Dates: start: 20110415, end: 20110420

REACTIONS (4)
  - EOSINOPHILIA [None]
  - DIARRHOEA [None]
  - RASH ERYTHEMATOUS [None]
  - PRURITUS [None]
